FAERS Safety Report 4439543-3 (Version None)
Quarter: 2004Q3

REPORT INFORMATION
  Report Type: 
  Country: None (occurrence: None)
  Receive Date: 20040901
  Receipt Date: 20040901
  Transmission Date: 20050211
  Serious: Yes (Hospitalization)
  Sender: FDA-Public Use
  Company Number: None

PATIENT
  Sex: Male
  Weight: 74.8435 kg

DRUGS (7)
  1. COUMADIN [Suspect]
     Indication: ATRIAL FIBRILLATION
     Dosage: PO, QD [PRIOR TO ADMISSION]
     Route: 048
  2. LOPRESSOR [Concomitant]
  3. ZOCOR [Concomitant]
  4. LASIX [Concomitant]
  5. KCL TAB [Concomitant]
  6. FOLIC ACID [Concomitant]
  7. BACID [Concomitant]

REACTIONS (2)
  - DIZZINESS [None]
  - HAEMATOCHEZIA [None]
